FAERS Safety Report 23706221 (Version 1)
Quarter: 2024Q2

REPORT INFORMATION
  Report Type: Spontaneous
  Country: US (occurrence: None)
  Receive Date: 20240403
  Receipt Date: 20240403
  Transmission Date: 20240715
  Serious: Yes (Life-Threatening, Hospitalization, Other)
  Sender: FDA-Public Use
  Company Number: None

PATIENT
  Age: 37 Year
  Sex: Male
  Weight: 99 kg

DRUGS (1)
  1. AMMONIA INHALANTS [Suspect]
     Active Substance: AMMONIA
     Dosage: TWICE A DAY RESPIRATORY INHALATION
     Route: 055
     Dates: start: 20240310, end: 20240402

REACTIONS (2)
  - Seizure [None]
  - Fall [None]

NARRATIVE: CASE EVENT DATE: 20240402
